FAERS Safety Report 17985465 (Version 1)
Quarter: 2020Q3

REPORT INFORMATION
  Report Type: Report from Study
  Country: None (occurrence: JP)
  Receive Date: 20200706
  Receipt Date: 20200706
  Transmission Date: 20201103
  Serious: Yes (Hospitalization)
  Sender: FDA-Public Use
  Company Number: JP-ABBVIE-20P-087-3471235-00

PATIENT
  Age: 57 Year
  Sex: Male
  Weight: 56 kg

DRUGS (7)
  1. CARBOCISTEINE [Concomitant]
     Active Substance: CARBOCYSTEINE
     Indication: BULBOSPINAL MUSCULAR ATROPHY CONGENITAL
     Dosage: 3 GRAM
     Route: 065
  2. LYRICA [Concomitant]
     Active Substance: PREGABALIN
     Indication: BULBOSPINAL MUSCULAR ATROPHY CONGENITAL
     Dosage: 250 MILLIGRAM
     Route: 065
     Dates: end: 20190214
  3. EPINASTINE. [Concomitant]
     Active Substance: EPINASTINE HYDROCHLORIDE
     Indication: PRODUCT USED FOR UNKNOWN INDICATION
     Dosage: 20 MILLIGRAM
     Route: 065
  4. METHYCOBAL [Concomitant]
     Active Substance: METHYLCOBALAMIN
     Indication: BULBOSPINAL MUSCULAR ATROPHY CONGENITAL
     Dosage: 1500 MICROGRAM
     Route: 065
  5. LEUPLIN [Suspect]
     Active Substance: LEUPROLIDE ACETATE
     Indication: BULBOSPINAL MUSCULAR ATROPHY CONGENITAL
     Route: 058
     Dates: start: 20180704, end: 20181219
  6. TOCOPHERYL NICOTINATE [Concomitant]
     Active Substance: TOCOPHERYL NICOTINATE, D-.ALPHA.
     Indication: BULBOSPINAL MUSCULAR ATROPHY CONGENITAL
     Dosage: 300 MILLIGRAM
     Route: 065
  7. EPADEL [Concomitant]
     Active Substance: ICOSAPENT
     Indication: BULBOSPINAL MUSCULAR ATROPHY CONGENITAL
     Dosage: 1800 MILLIGRAM
     Route: 065

REACTIONS (2)
  - Asphyxia [Recovering/Resolving]
  - Pneumonia aspiration [Recovering/Resolving]

NARRATIVE: CASE EVENT DATE: 20190117
